FAERS Safety Report 13861754 (Version 1)
Quarter: 2017Q3

REPORT INFORMATION
  Report Type: Spontaneous
  Country: JP (occurrence: JP)
  Receive Date: 20170811
  Receipt Date: 20170811
  Transmission Date: 20171127
  Serious: Yes (Other)
  Sender: FDA-Public Use
  Company Number: JP-PFIZER INC-2017259052

PATIENT
  Age: 66 Year
  Sex: Female

DRUGS (8)
  1. CEFAZOLIN SODIUM. [Concomitant]
     Active Substance: CEFAZOLIN SODIUM
     Indication: HIP SURGERY
     Dosage: 3 G, 1X/DAY
     Route: 041
     Dates: start: 20170525, end: 20170527
  2. CELECOX [Suspect]
     Active Substance: CELECOXIB
     Indication: PROCEDURAL PAIN
     Dosage: 200 MG, TWICE DAILY, MORNING AND EVENING
     Route: 048
     Dates: start: 20170526, end: 20170527
  3. TALION /01587402/ [Concomitant]
     Active Substance: BEPOTASTINE
     Indication: ERYTHEMA
     Dosage: UNK
     Route: 065
     Dates: start: 201705
  4. ATARAX-P /00058402/ [Concomitant]
     Active Substance: HYDROXYZINE HYDROCHLORIDE
     Indication: ERYTHEMA
     Dosage: 25 MG, 1X/DAY
     Route: 065
     Dates: start: 201705
  5. LIXIANA [Concomitant]
     Active Substance: EDOXABAN TOSYLATE
     Dosage: UNK UNK, UNKNOWN FREQ
     Route: 065
     Dates: start: 201705
  6. MUCOSTA [Concomitant]
     Active Substance: REBAMIPIDE
     Dosage: UNK
     Route: 048
     Dates: start: 20170526
  7. HEPARIN [Concomitant]
     Active Substance: HEPARIN SODIUM
     Dosage: UNK
     Route: 065
  8. WARFARIN /00014803/ [Concomitant]
     Active Substance: WARFARIN
     Dosage: UNK
     Route: 048
     Dates: start: 20170527

REACTIONS (3)
  - Erythema [Recovered/Resolved]
  - Intentional underdose [Unknown]
  - Atrial fibrillation [Recovered/Resolved]

NARRATIVE: CASE EVENT DATE: 20170526
